FAERS Safety Report 7496305-0 (Version None)
Quarter: 2011Q2

REPORT INFORMATION
  Report Type: 
  Country: None (occurrence: None)
  Receive Date: 20110523
  Receipt Date: 20110522
  Transmission Date: 20111010
  Serious: Yes (Other)
  Sender: FDA-Public Use
  Company Number: US-PFIZER INC-2011106043

PATIENT
  Sex: Female
  Weight: 95.2 kg

DRUGS (3)
  1. METOPROLOL [Concomitant]
     Indication: CARDIAC DISORDER
     Dosage: 50 MG, UNK
  2. EFFEXOR XR [Suspect]
     Dosage: 150 MG, 2X/DAY
  3. EFFEXOR XR [Suspect]
     Indication: DEPRESSION
     Dosage: 75 MG, 2X/DAY

REACTIONS (5)
  - CONFUSIONAL STATE [None]
  - COGNITIVE DISORDER [None]
  - DEMENTIA [None]
  - IMPAIRED DRIVING ABILITY [None]
  - DRUG DISPENSING ERROR [None]
